FAERS Safety Report 10442388 (Version 1)
Quarter: 2014Q3

REPORT INFORMATION
  Report Type: Spontaneous
  Country: US (occurrence: None)
  Receive Date: 20140908
  Receipt Date: 20140908
  Transmission Date: 20150326
  Serious: Yes (Other)
  Sender: FDA-Public Use
  Company Number: ADR-2014-01599

PATIENT
  Age: 56 Year
  Sex: Female

DRUGS (3)
  1. BACLOFEN INTRATHECAL [Suspect]
     Active Substance: BACLOFEN
     Indication: PAIN
     Dosage: 52.22 MG/DAY
  2. BUPIVACAINE INTRATHECAL [Suspect]
     Active Substance: BUPIVACAINE
     Dosage: 2.6108 MG/DAY
  3. MORPHINE INTRATHECAL [Suspect]
     Active Substance: MORPHINE

REACTIONS (4)
  - Device dislocation [None]
  - Patient-device incompatibility [None]
  - Staphylococcal infection [None]
  - Weight decreased [None]
